FAERS Safety Report 21784930 (Version 1)
Quarter: 2022Q4

REPORT INFORMATION
  Report Type: Spontaneous
  Country: US (occurrence: None)
  Receive Date: 20221223
  Receipt Date: 20221223
  Transmission Date: 20230113
  Serious: No
  Sender: FDA-Public Use
  Company Number: None

PATIENT
  Age: 80 Year
  Sex: Male

DRUGS (1)
  1. ESBRIET [Suspect]
     Active Substance: PIRFENIDONE
     Indication: Interstitial lung disease
     Dosage: FREQUENCY : DAILY;?
     Route: 048
     Dates: start: 20200922, end: 20221130

REACTIONS (1)
  - Death [None]

NARRATIVE: CASE EVENT DATE: 20221130
